FAERS Safety Report 21422537 (Version 1)
Quarter: 2022Q4

REPORT INFORMATION
  Report Type: Spontaneous
  Country: US (occurrence: None)
  Receive Date: 20221006
  Receipt Date: 20221006
  Transmission Date: 20230113
  Serious: No
  Sender: FDA-Public Use
  Company Number: None

PATIENT
  Sex: 0

DRUGS (1)
  1. FLUDEOXYGLUCOSE F-18 [Suspect]
     Active Substance: FLUDEOXYGLUCOSE F-18
     Indication: Imaging procedure
     Dates: start: 20220912, end: 20220912

REACTIONS (6)
  - Drug ineffective [None]
  - Manufacturing process control procedure issue [None]
  - Product sterility issue [None]
  - Product label on wrong product [None]
  - Product label issue [None]
  - Wrong product administered [None]

NARRATIVE: CASE EVENT DATE: 20220912
